FAERS Safety Report 17709180 (Version 1)
Quarter: 2020Q2

REPORT INFORMATION
  Report Type: Spontaneous
  Country: US (occurrence: US)
  Receive Date: 20200426
  Receipt Date: 20200426
  Transmission Date: 20200714
  Serious: No
  Sender: FDA-Public Use
  Company Number: US-TEVA-2020-US-1226159

PATIENT

DRUGS (2)
  1. METOPROLOL ER SUCCINATE TEVA [Suspect]
     Active Substance: METOPROLOL SUCCINATE
     Route: 065
  2. METOPROLOL ER SUCCINATE TEVA [Suspect]
     Active Substance: METOPROLOL SUCCINATE
     Route: 065

REACTIONS (3)
  - Blood pressure increased [Unknown]
  - Abdominal pain lower [Unknown]
  - Product substitution issue [Unknown]
